FAERS Safety Report 5042790-3 (Version None)
Quarter: 2006Q3

REPORT INFORMATION
  Report Type: 
  Country: None (occurrence: None)
  Receive Date: 20060705
  Receipt Date: 20060512
  Transmission Date: 20061208
  Serious: Yes (Death, Disabling)
  Sender: FDA-Public Use
  Company Number: 2006UW09397

PATIENT
  Age: 87 Year
  Sex: Female
  Weight: 29.5 kg

DRUGS (1)
  1. SEROQUEL [Suspect]
     Indication: DEMENTIA ALZHEIMER'S TYPE
     Route: 048
     Dates: start: 20040101

REACTIONS (4)
  - DEATH [None]
  - FALL [None]
  - INSOMNIA [None]
  - LOWER LIMB FRACTURE [None]
